FAERS Safety Report 8180950-3 (Version None)
Quarter: 2012Q1

REPORT INFORMATION
  Report Type: 
  Country: None (occurrence: None)
  Receive Date: 20120302
  Receipt Date: 20120222
  Transmission Date: 20120608
  Serious: Yes (Death, Life-Threatening)
  Sender: FDA-Public Use
  Company Number: JP-EISAI INC-E7389-01580-SPO-JP

PATIENT
  Sex: Female
  Weight: 55 kg

DRUGS (2)
  1. HALAVEN [Suspect]
     Indication: BREAST CANCER RECURRENT
     Route: 042
     Dates: start: 20110912, end: 20110912
  2. DECADRON [Concomitant]

REACTIONS (2)
  - FEBRILE NEUTROPENIA [None]
  - PNEUMONIA [None]
